FAERS Safety Report 5624308-7 (Version None)
Quarter: 2008Q1

REPORT INFORMATION
  Report Type: 
  Country: None (occurrence: None)
  Receive Date: 20080213
  Receipt Date: 20080205
  Transmission Date: 20080703
  Serious: Yes (Hospitalization)
  Sender: FDA-Public Use
  Company Number: FR-ELI_LILLY_AND_COMPANY-FR200802001087

PATIENT
  Sex: Female

DRUGS (2)
  1. GEMCITABINE HCL [Suspect]
     Indication: BREAST CANCER METASTATIC
     Dosage: 1480 MG, OTHER
     Route: 042
     Dates: start: 20080124
  2. VINFLUNINE [Suspect]
     Indication: BREAST CANCER METASTATIC
     Dosage: 475 MG, OTHER
     Route: 042
     Dates: start: 20080124

REACTIONS (4)
  - FATIGUE [None]
  - NAUSEA [None]
  - TRISMUS [None]
  - URTICARIA [None]
